FAERS Safety Report 17372627 (Version 1)
Quarter: 2020Q1

REPORT INFORMATION
  Report Type: Spontaneous
  Country: DK (occurrence: DK)
  Receive Date: 20200205
  Receipt Date: 20200205
  Transmission Date: 20200409
  Serious: Yes (Other)
  Sender: FDA-Public Use
  Company Number: DK-MYLANLABS-2019M1075370

PATIENT
  Age: 80 Year
  Sex: Female

DRUGS (5)
  1. COLIFOAM [Suspect]
     Active Substance: HYDROCORTISONE
     Indication: COLITIS ULCERATIVE
     Dosage: UNK
     Route: 054
     Dates: start: 2011
  2. KODEIN [Concomitant]
     Active Substance: CODEINE PHOSPHATE
     Indication: SPINAL STENOSIS
     Dosage: 2-3 TIMES/DAILY
     Route: 048
  3. ENTOCORT [Suspect]
     Active Substance: BUDESONIDE
     Indication: COLITIS ULCERATIVE
     Dosage: UNK
     Route: 054
  4. PANODIL [Concomitant]
     Active Substance: ACETAMINOPHEN
     Indication: SPINAL STENOSIS
     Dosage: 100 MILLIGRAM (2-3 TIMES/DAILY)
     Route: 048
  5. IMODIUM [Concomitant]
     Active Substance: LOPERAMIDE HYDROCHLORIDE
     Indication: DIARRHOEA
     Dosage: SEVERAL TIMES/DAILY
     Route: 048

REACTIONS (7)
  - Large intestinal haemorrhage [Unknown]
  - Pneumonia [Recovered/Resolved]
  - Product availability issue [Unknown]
  - Colitis ulcerative [Unknown]
  - Spinal stenosis [Not Recovered/Not Resolved]
  - Diarrhoea [Unknown]
  - Product dose omission [Unknown]

NARRATIVE: CASE EVENT DATE: 2005
